FAERS Safety Report 6236896-0 (Version None)
Quarter: 2009Q2

REPORT INFORMATION
  Report Type: 
  Country: None (occurrence: None)
  Receive Date: 20090619
  Receipt Date: 20090610
  Transmission Date: 20091009
  Serious: Yes (Other)
  Sender: FDA-Public Use
  Company Number: US-PFIZER INC-2009229106

PATIENT
  Age: 37 Year
  Sex: Female
  Weight: 99.79 kg

DRUGS (1)
  1. GEODON [Suspect]
     Dosage: FREQUENCY: EVERY DAY;
     Route: 048

REACTIONS (2)
  - FEELING ABNORMAL [None]
  - PSYCHOTIC DISORDER [None]
